FAERS Safety Report 6933707-2 (Version None)
Quarter: 2010Q3

REPORT INFORMATION
  Report Type: 
  Country: None (occurrence: None)
  Receive Date: 20100820
  Receipt Date: 20100812
  Transmission Date: 20110219
  Serious: Yes (Hospitalization)
  Sender: FDA-Public Use
  Company Number: FR-ASTRAZENECA-2010SE38057

PATIENT
  Age: 29846 Day
  Sex: Female

DRUGS (5)
  1. ATACAND [Suspect]
     Route: 048
  2. KARDEGIC [Concomitant]
  3. FENOFIBRATE [Concomitant]
  4. ZALDIAR [Concomitant]
  5. BONIVA [Concomitant]

REACTIONS (1)
  - HYPONATRAEMIA [None]
